FAERS Safety Report 8022323-X (Version None)
Quarter: 2012Q1

REPORT INFORMATION
  Report Type: 
  Country: None (occurrence: None)
  Receive Date: 20120104
  Receipt Date: 20111226
  Transmission Date: 20120608
  Serious: Yes (Other)
  Sender: FDA-Public Use
  Company Number: JP-ASTRAZENECA-2011SE67969

PATIENT
  Age: 74 Year
  Sex: Female
  Weight: 54 kg

DRUGS (7)
  1. IRESSA [Interacting]
     Route: 048
     Dates: start: 20111108
  2. URSO 250 [Concomitant]
     Route: 048
     Dates: start: 20111011
  3. VERAPAMIL HCL [Interacting]
     Indication: SUPRAVENTRICULAR EXTRASYSTOLES
     Route: 048
  4. IRESSA [Suspect]
     Indication: LUNG ADENOCARCINOMA
     Route: 048
     Dates: start: 20110906, end: 20111007
  5. ANTEBATE [Concomitant]
     Dosage: 10 G X1, DOSE UNKNOWN
     Route: 061
     Dates: start: 20100920
  6. HIRUDOID [Concomitant]
     Dosage: 50 G X1, DOSE UNKNOWN
     Route: 061
     Dates: start: 20110920
  7. VERAPAMIL HCL [Interacting]
     Indication: ATRIAL FIBRILLATION
     Route: 048

REACTIONS (3)
  - DERMATITIS ACNEIFORM [None]
  - HEPATIC FUNCTION ABNORMAL [None]
  - DRUG INTERACTION [None]
